FAERS Safety Report 7217255-0 (Version None)
Quarter: 2011Q1

REPORT INFORMATION
  Report Type: 
  Country: None (occurrence: None)
  Receive Date: 20110110
  Receipt Date: 20110104
  Transmission Date: 20110831
  Serious: Yes (Hospitalization)
  Sender: FDA-Public Use
  Company Number: BR-US-EMD SERONO, INC.-7031390

PATIENT
  Sex: Female

DRUGS (7)
  1. MANTIDAN [Concomitant]
  2. PAMELOR [Concomitant]
  3. FLUOXETINE [Concomitant]
  4. TRAMAL [Concomitant]
     Indication: PAIN
  5. DIAZEPAM [Concomitant]
  6. VIOCIL [Concomitant]
  7. REBIF [Suspect]
     Indication: SECONDARY PROGRESSIVE MULTIPLE SCLEROSIS
     Dates: start: 20100601

REACTIONS (3)
  - VISION BLURRED [None]
  - URINARY TRACT INFECTION [None]
  - MONOPLEGIA [None]
